FAERS Safety Report 8175089-7 (Version None)
Quarter: 2012Q1

REPORT INFORMATION
  Report Type: 
  Country: None (occurrence: None)
  Receive Date: 20120229
  Receipt Date: 20120222
  Transmission Date: 20120608
  Serious: Yes (Life-Threatening, Hospitalization, Other)
  Sender: FDA-Public Use
  Company Number: PHHY2011AR96616

PATIENT
  Sex: Female

DRUGS (2)
  1. EXELON [Suspect]
     Dosage: 4.6 MG
     Route: 062
     Dates: start: 20111014, end: 20120116
  2. EXELON [Suspect]
     Indication: MEMORY IMPAIRMENT
     Dosage: 9.5 MG, 1 PATCH DAILY
     Route: 062
     Dates: start: 20110913

REACTIONS (11)
  - SENSORY DISTURBANCE [None]
  - HYPERTENSION [None]
  - DRY SKIN [None]
  - APPLICATION SITE PRURITUS [None]
  - DYSPNOEA [None]
  - VOMITING [None]
  - APPLICATION SITE BLEEDING [None]
  - MENTAL DISORDER [None]
  - GASTROENTERITIS [None]
  - HYPOTENSION [None]
  - APPLICATION SITE ERYTHEMA [None]
